FAERS Safety Report 7334967-9 (Version None)
Quarter: 2011Q1

REPORT INFORMATION
  Report Type: 
  Country: None (occurrence: None)
  Receive Date: 20110211
  Receipt Date: 20101015
  Transmission Date: 20110831
  Serious: Yes (Other)
  Sender: FDA-Public Use
  Company Number: 2010-01026

PATIENT
  Age: 61 Year
  Sex: Male
  Weight: 72.5755 kg

DRUGS (1)
  1. CEFPROZIL [Suspect]
     Indication: INFECTION
     Dosage: 1000 MG (500 MG, 2 IN 1 D), PER ORAL
     Route: 048
     Dates: start: 20100831, end: 20100926

REACTIONS (4)
  - ASTHENIA [None]
  - JAUNDICE [None]
  - NAUSEA [None]
  - HEPATIC ENZYME INCREASED [None]
